FAERS Safety Report 6089407-7 (Version None)
Quarter: 2009Q1

REPORT INFORMATION
  Report Type: 
  Country: None (occurrence: None)
  Receive Date: 20090224
  Receipt Date: 20090212
  Transmission Date: 20090719
  Serious: Yes (Other)
  Sender: FDA-Public Use
  Company Number: GB-ROCHE-615396

PATIENT
  Sex: Female

DRUGS (3)
  1. ISOTRETINOIN [Suspect]
     Indication: DRUG USE FOR UNKNOWN INDICATION
     Dosage: REPORTED AS 40MG DAILY
     Route: 065
  2. ISOTRETINOIN [Suspect]
     Route: 065
  3. ISOTRETINOIN [Suspect]
     Route: 065
     Dates: end: 20080901

REACTIONS (1)
  - ANOREXIA [None]
